FAERS Safety Report 8696894 (Version 2)
Quarter: 2015Q4

REPORT INFORMATION
  Report Type: Report from Study
  Country: US (occurrence: US)
  Receive Date: 20120801
  Receipt Date: 20151215
  Transmission Date: 20160305
  Serious: Yes (Death)
  Sender: FDA-Public Use
  Company Number: US-ROCHE-1094493

PATIENT
  Sex: Female
  Weight: 62.4 kg

DRUGS (27)
  1. CARBOPLATIN. [Concomitant]
     Active Substance: CARBOPLATIN
     Route: 065
  2. TAXOL [Concomitant]
     Active Substance: PACLITAXEL
     Route: 065
  3. DEXAMETHASONE. [Concomitant]
     Active Substance: DEXAMETHASONE
     Route: 042
  4. AVASTIN [Suspect]
     Active Substance: BEVACIZUMAB
     Indication: LUNG NEOPLASM MALIGNANT
     Route: 042
     Dates: start: 20120126
  5. CARBOPLATIN. [Concomitant]
     Active Substance: CARBOPLATIN
     Route: 065
  6. CARBOPLATIN. [Concomitant]
     Active Substance: CARBOPLATIN
     Route: 065
  7. TAXOL [Concomitant]
     Active Substance: PACLITAXEL
     Route: 065
  8. RANITIDINE [Concomitant]
     Active Substance: RANITIDINE\RANITIDINE HYDROCHLORIDE
     Route: 042
  9. DIPHENHYDRAMINE. [Concomitant]
     Active Substance: DIPHENHYDRAMINE
     Route: 042
  10. AVASTIN [Suspect]
     Active Substance: BEVACIZUMAB
     Route: 042
  11. CARBOPLATIN. [Concomitant]
     Active Substance: CARBOPLATIN
     Route: 065
  12. CARBOPLATIN. [Concomitant]
     Active Substance: CARBOPLATIN
     Route: 065
  13. TAXOL [Concomitant]
     Active Substance: PACLITAXEL
     Route: 065
  14. ZOMETA [Concomitant]
     Active Substance: ZOLEDRONIC ACID
     Route: 042
  15. AVASTIN [Suspect]
     Active Substance: BEVACIZUMAB
     Route: 042
     Dates: start: 20110930
  16. MIRALAX [Concomitant]
     Active Substance: POLYETHYLENE GLYCOL 3350
     Route: 065
  17. AVASTIN [Suspect]
     Active Substance: BEVACIZUMAB
     Route: 042
  18. AVASTIN [Suspect]
     Active Substance: BEVACIZUMAB
     Route: 042
  19. TAXOL [Concomitant]
     Active Substance: PACLITAXEL
     Route: 065
  20. CARBOPLATIN. [Concomitant]
     Active Substance: CARBOPLATIN
     Route: 065
  21. TAXOL [Concomitant]
     Active Substance: PACLITAXEL
     Route: 065
     Dates: start: 20111230
  22. ONDANSETRON [Concomitant]
     Active Substance: ONDANSETRON
     Route: 042
  23. AVASTIN [Suspect]
     Active Substance: BEVACIZUMAB
     Indication: HEAD AND NECK CANCER
     Route: 042
     Dates: start: 20111230
  24. AVASTIN [Suspect]
     Active Substance: BEVACIZUMAB
     Route: 042
  25. CARBOPLATIN. [Concomitant]
     Active Substance: CARBOPLATIN
     Route: 065
  26. TAXOL [Concomitant]
     Active Substance: PACLITAXEL
     Route: 065
  27. TAXOL [Concomitant]
     Active Substance: PACLITAXEL
     Route: 065

REACTIONS (10)
  - Cough [Unknown]
  - Nasopharyngitis [Unknown]
  - Hot flush [Unknown]
  - Dyspnoea exertional [Unknown]
  - Epistaxis [Unknown]
  - Paraesthesia [Unknown]
  - Stress [Unknown]
  - Fatigue [Unknown]
  - Death [Fatal]
  - Constipation [Unknown]
